FAERS Safety Report 24654962 (Version 2)
Quarter: 2025Q3

REPORT INFORMATION
  Report Type: Report from Study
  Country: US (occurrence: US)
  Receive Date: 20241122
  Receipt Date: 20250809
  Transmission Date: 20251020
  Serious: Yes (Other)
  Sender: ALEXION PHARMACEUTICALS
  Company Number: US-AstraZeneca-CH-00749498A

PATIENT

DRUGS (1)
  1. ULTOMIRIS [Suspect]
     Active Substance: RAVULIZUMAB-CWVZ
     Indication: Neuromyelitis optica spectrum disorder
     Route: 065

REACTIONS (6)
  - Hyperthyroidism [Unknown]
  - Seizure [Unknown]
  - Hypoaesthesia [Unknown]
  - Muscle twitching [Unknown]
  - Muscular weakness [Unknown]
  - Heart rate increased [Unknown]
